FAERS Safety Report 7565903-8 (Version None)
Quarter: 2011Q2

REPORT INFORMATION
  Report Type: 
  Country: None (occurrence: None)
  Receive Date: 20110623
  Receipt Date: 20110610
  Transmission Date: 20111010
  Serious: Yes (Other)
  Sender: FDA-Public Use
  Company Number: IT-ELI_LILLY_AND_COMPANY-IT201106005960

PATIENT

DRUGS (4)
  1. ALIMTA [Suspect]
     Indication: LUNG ADENOCARCINOMA
     Dosage: 790 MG, UNKNOWN
     Route: 042
     Dates: start: 20090818
  2. FOLIC ACID [Concomitant]
     Dosage: 270 MG, UNK
     Route: 048
     Dates: start: 20090811
  3. DEXAMETHASONE SODIUM PHOSPHATE [Concomitant]
     Dosage: 16 MG, UNK
     Route: 048
     Dates: start: 20090817
  4. DOBETIN [Concomitant]
     Dosage: 1000 MG, UNK
     Route: 030
     Dates: start: 20090811

REACTIONS (1)
  - HEPATOTOXICITY [None]
